FAERS Safety Report 5362568-0 (Version None)
Quarter: 2007Q2

REPORT INFORMATION
  Report Type: 
  Country: None (occurrence: None)
  Receive Date: 20070619
  Receipt Date: 20070611
  Transmission Date: 20071010
  Serious: Yes (Life-Threatening, Hospitalization)
  Sender: FDA-Public Use
  Company Number: DE-BOEHRINGER INGELHEIM PHARMACEUTICALS, INC.-2007-DE-03414DE

PATIENT
  Sex: Male
  Weight: 91 kg

DRUGS (13)
  1. MICARDIS HCT [Suspect]
     Indication: HYPERTENSION
     Dosage: 80 MG TELMISARTAN, 12,5 MG HCT
     Route: 048
     Dates: start: 20051101, end: 20060523
  2. DEPRESSAN [Suspect]
     Indication: HYPERTENSION
     Route: 048
     Dates: start: 20051101, end: 20060523
  3. HYDROCHLOROTHIAZIDE [Concomitant]
     Indication: DEHYDRATION
     Route: 048
     Dates: start: 20000101, end: 20060523
  4. ALLOPURINOL [Concomitant]
     Indication: HYPERURICAEMIA
     Route: 048
     Dates: start: 19950801, end: 20060523
  5. BETOPTIMA [Concomitant]
     Dosage: 1-0-1
     Dates: start: 20050301, end: 20060523
  6. TRUSOPT [Concomitant]
     Dosage: 1-0-1
     Dates: start: 20050301, end: 20060523
  7. OCUVITE COMPLETE [Concomitant]
     Dosage: 2-0-0
     Dates: start: 20041101, end: 20050101
  8. OCUVITE COMPLETE [Concomitant]
     Dates: start: 20060201, end: 20060401
  9. EYE DROPS [Concomitant]
     Indication: GLAUCOMA
     Dosage: 1-1-1
     Dates: start: 19840101, end: 20050101
  10. ANTIBIOTICS [Concomitant]
     Indication: CYSTITIS
     Dosage: 1-1-1
     Dates: start: 20040701, end: 20040701
  11. ANTIHYPERTENSIVES [Concomitant]
     Indication: HYPERTENSION
     Dosage: 1-0-0
     Dates: start: 19970101, end: 20051101
  12. VACCINE [Concomitant]
     Indication: PROPHYLAXIS
     Dates: start: 20060516, end: 20060516
  13. OCUVITE COMPLETE [Concomitant]
     Dates: start: 20060201, end: 20060401

REACTIONS (1)
  - HEPATITIS ACUTE [None]
